FAERS Safety Report 4323226-4 (Version None)
Quarter: 2004Q1

REPORT INFORMATION
  Report Type: 
  Country: None (occurrence: None)
  Receive Date: 20040322
  Receipt Date: 20040310
  Transmission Date: 20041129
  Serious: Yes (Hospitalization)
  Sender: FDA-Public Use
  Company Number: 2004-01034

PATIENT
  Age: 65 Year
  Sex: Male

DRUGS (10)
  1. FLUOROURACIL [Suspect]
     Indication: COLON CANCER
     Dosage: 5-FU/FA AT 370 + 20 MG/M2 WEEKLY, UNK
  2. PHENYTOIN [Concomitant]
     Indication: GRAND MAL CONVULSION
     Dosage: SEE IMAGE
     Route: 048
  3. FOLINIC ACID( FOLINIC ACID) [Concomitant]
  4. MORPHINE [Concomitant]
  5. LACTULOSE [Concomitant]
  6. COLOXYL [Concomitant]
  7. SENNA [Concomitant]
  8. MULTIVITAMINS (PANTHENOL, NICOTINAMIDE, RIBOFLAVIN, RETINOL, THIAMINE [Concomitant]
  9. LORATADINE [Concomitant]
  10. PHENOBARBITONE [Concomitant]

REACTIONS (10)
  - ASTHENIA [None]
  - ATAXIA [None]
  - CONFUSIONAL STATE [None]
  - DRUG INTERACTION POTENTIATION [None]
  - DRUG TOXICITY [None]
  - DYSARTHRIA [None]
  - DYSSTASIA [None]
  - FATIGUE [None]
  - NYSTAGMUS [None]
  - SOMNOLENCE [None]
